FAERS Safety Report 4994315-6 (Version None)
Quarter: 2006Q1

REPORT INFORMATION
  Report Type: 
  Country: None (occurrence: None)
  Receive Date: 20060314
  Receipt Date: 20050913
  Transmission Date: 20060701
  Serious: Yes (Other)
  Sender: FDA-Public Use
  Company Number: 200512944BCC

PATIENT
  Age: 57 Year
  Sex: Male
  Weight: 122.4712 kg

DRUGS (3)
  1. ALEVE [Suspect]
     Dosage: 440 MG, ONCE, ORAL;220 MG,TOTAL DAILY,ORAL
     Route: 048
     Dates: start: 20040701
  2. ALEVE [Suspect]
     Dosage: 440 MG, ONCE, ORAL;220 MG,TOTAL DAILY,ORAL
     Route: 048
     Dates: start: 20050701
  3. DIOVAN [Concomitant]

REACTIONS (5)
  - HYPERSENSITIVITY [None]
  - PHARYNGEAL OEDEMA [None]
  - PRURITUS [None]
  - SWOLLEN TONGUE [None]
  - URTICARIA [None]
